FAERS Safety Report 8294152-3 (Version None)
Quarter: 2012Q2

REPORT INFORMATION
  Report Type: 
  Country: None (occurrence: None)
  Receive Date: 20120418
  Receipt Date: 20120412
  Transmission Date: 20120825
  Serious: Yes (Other)
  Sender: FDA-Public Use
  Company Number: PHHY2012DE031346

PATIENT
  Sex: Male

DRUGS (2)
  1. BISOPROLOL FUMARATE [Concomitant]
     Dosage: 2 DF, QD
     Route: 048
  2. DIOVAN [Suspect]
     Dosage: 0.5 DF, QD
     Route: 048

REACTIONS (2)
  - THROMBOSIS [None]
  - WRONG TECHNIQUE IN DRUG USAGE PROCESS [None]
